FAERS Safety Report 11859579 (Version 2)
Quarter: 2016Q1

REPORT INFORMATION
  Report Type: Spontaneous
  Country: US (occurrence: US)
  Receive Date: 20151221
  Receipt Date: 20160211
  Transmission Date: 20160526
  Serious: Yes (Hospitalization, Other)
  Sender: FDA-Public Use
  Company Number: US-JNJFOC-20151215176

PATIENT
  Age: 55 Year
  Sex: Male
  Weight: 81.19 kg

DRUGS (6)
  1. NORCO [Concomitant]
     Active Substance: ACETAMINOPHEN\HYDROCODONE BITARTRATE
     Indication: PAIN
     Dosage: 5-325 MG
     Route: 065
  2. TEMOVATE [Concomitant]
     Active Substance: CLOBETASOL PROPIONATE
     Indication: PSORIASIS
     Dosage: 0.05
     Route: 065
     Dates: start: 20131125
  3. STELARA [Suspect]
     Active Substance: USTEKINUMAB
     Indication: NAIL PSORIASIS
     Route: 058
     Dates: start: 20151111, end: 20151211
  4. LIDEX [Concomitant]
     Active Substance: FLUOCINONIDE
     Route: 065
     Dates: start: 20151111
  5. CRESTOR [Concomitant]
     Active Substance: ROSUVASTATIN CALCIUM
     Indication: HYPERCHOLESTEROLAEMIA
     Route: 065
     Dates: start: 20151102
  6. ASA [Concomitant]
     Active Substance: ASPIRIN
     Indication: HYPERLIPIDAEMIA
     Route: 048
     Dates: start: 20151125

REACTIONS (2)
  - Arteriosclerosis coronary artery [Recovered/Resolved]
  - Adverse drug reaction [Unknown]

NARRATIVE: CASE EVENT DATE: 2015
